FAERS Safety Report 7546275-1 (Version None)
Quarter: 2011Q2

REPORT INFORMATION
  Report Type: 
  Country: None (occurrence: None)
  Receive Date: 20110607
  Receipt Date: 20110528
  Transmission Date: 20111010
  Serious: Yes (Life-Threatening, Other)
  Sender: FDA-Public Use
  Company Number: 1000021273

PATIENT
  Age: 76 Year
  Sex: Female
  Weight: 68 kg

DRUGS (2)
  1. AMITRIPTLINE HYDROCHLORIDE TAB [Suspect]
     Dosage: 525 MG, ONCE, ORAL
     Route: 048
     Dates: start: 20110501, end: 20110501
  2. MEMANTINE [Suspect]
     Dosage: 200 MG, ONCE, ORAL
     Route: 048
     Dates: start: 20110501, end: 20110501

REACTIONS (3)
  - SUICIDE ATTEMPT [None]
  - INTENTIONAL DRUG MISUSE [None]
  - MECHANICAL VENTILATION [None]
